FAERS Safety Report 7813781-1 (Version None)
Quarter: 2011Q4

REPORT INFORMATION
  Report Type: 
  Country: None (occurrence: None)
  Receive Date: 20111014
  Receipt Date: 20111004
  Transmission Date: 20120403
  Serious: Yes (Other)
  Sender: FDA-Public Use
  Company Number: DK-JNJFOC-20111002103

PATIENT
  Sex: Male

DRUGS (3)
  1. PREDNISOLONE [Concomitant]
     Route: 065
     Dates: start: 20071009
  2. REMICADE [Suspect]
     Indication: RHEUMATOID ARTHRITIS
     Route: 042
     Dates: start: 20100928
  3. METHOTREXATE [Concomitant]
     Route: 048
     Dates: start: 20070828

REACTIONS (1)
  - SQUAMOUS CELL CARCINOMA [None]
